FAERS Safety Report 20127708 (Version 1)
Quarter: 2021Q4

REPORT INFORMATION
  Report Type: Spontaneous
  Country: US (occurrence: None)
  Receive Date: 20211129
  Receipt Date: 20211129
  Transmission Date: 20220304
  Serious: No
  Sender: FDA-Public Use
  Company Number: None

PATIENT
  Age: 66 Year
  Sex: Female
  Weight: 99.56 kg

DRUGS (1)
  1. NURTEC ODT [Suspect]
     Active Substance: RIMEGEPANT SULFATE
     Indication: Drug therapy
     Route: 048
     Dates: start: 20210720

REACTIONS (2)
  - Feeling jittery [None]
  - Tremor [None]

NARRATIVE: CASE EVENT DATE: 20210723
